FAERS Safety Report 6548606-8 (Version None)
Quarter: 2010Q1

REPORT INFORMATION
  Report Type: 
  Country: None (occurrence: None)
  Receive Date: 20100124
  Receipt Date: 20090908
  Transmission Date: 20100710
  Serious: No
  Sender: FDA-Public Use
  Company Number: US-ALLERGAN-0912513US

PATIENT
  Sex: Female

DRUGS (10)
  1. RESTASIS [Suspect]
     Indication: DRY EYE
  2. LASIX [Concomitant]
  3. METOLAZONE [Concomitant]
  4. TOPAMAX [Concomitant]
  5. ZANTAC [Concomitant]
  6. LANOXIN [Concomitant]
  7. WARFARIN [Concomitant]
  8. VALIUM [Concomitant]
  9. OGEN [Concomitant]
  10. METOPROLOL TARTRATE [Concomitant]

REACTIONS (2)
  - EYE IRRITATION [None]
  - FOREIGN BODY SENSATION IN EYES [None]
